FAERS Safety Report 7929701-5 (Version None)
Quarter: 2011Q4

REPORT INFORMATION
  Report Type: 
  Country: None (occurrence: None)
  Receive Date: 20111121
  Receipt Date: 20111118
  Transmission Date: 20120403
  Serious: Yes (Other)
  Sender: FDA-Public Use
  Company Number: US-PFIZER INC-2011278049

PATIENT
  Sex: Male
  Weight: 68.027 kg

DRUGS (7)
  1. ABILIFY [Concomitant]
     Indication: BIPOLAR DISORDER
     Dosage: 5 MG, DAILY
  2. CHANTIX [Suspect]
     Indication: SMOKING CESSATION THERAPY
     Dosage: 0.5 MG, DAILY
     Route: 048
     Dates: start: 20111101, end: 20111112
  3. MIRTAZAPINE [Concomitant]
     Indication: BIPOLAR DISORDER
     Dosage: 30 MG, DAILY
  4. CALCIUM CARBONATE [Concomitant]
     Dosage: UNK
  5. ATRIPLA [Concomitant]
     Indication: HIV INFECTION
     Dosage: 600/200/300 MG, DAILY
  6. LITHIUM [Concomitant]
     Indication: BIPOLAR DISORDER
     Dosage: 900 MG, DAILY
  7. SEROQUEL [Concomitant]
     Indication: BIPOLAR DISORDER
     Dosage: 100 MG, DAILY

REACTIONS (7)
  - VIOLENCE-RELATED SYMPTOM [None]
  - SUICIDAL IDEATION [None]
  - HOMICIDAL IDEATION [None]
  - NASOPHARYNGITIS [None]
  - ANXIETY [None]
  - EMOTIONAL DISTRESS [None]
  - DEPRESSED MOOD [None]
